FAERS Safety Report 4300833-6 (Version None)
Quarter: 2004Q1

REPORT INFORMATION
  Report Type: 
  Country: None (occurrence: None)
  Receive Date: 20040218
  Receipt Date: 20040203
  Transmission Date: 20041129
  Serious: Yes (Other)
  Sender: FDA-Public Use
  Company Number: M04-341-027

PATIENT
  Age: 75 Year
  Sex: Female
  Weight: 58 kg

DRUGS (13)
  1. VELCADE [Suspect]
     Indication: MULTIPLE MYELOMA
     Dosage: 1.3 MG/M2: INTRAVENOUS (NOS)
     Route: 042
     Dates: start: 20040113, end: 20040116
  2. ACETYLSALICYLIC ACID SRT [Concomitant]
  3. ALBUTEROL [Concomitant]
  4. CIPRO [Concomitant]
  5. DILTIAZEM [Concomitant]
  6. GLYCERYL TRINITRATE [Concomitant]
  7. IRON [Concomitant]
  8. LISINOPRIL [Concomitant]
  9. NAPROXEN [Concomitant]
  10. PANTOPRAZOLE [Concomitant]
  11. VIOXX [Concomitant]
  12. VITAMIN C (ASCORBIC ACID) [Concomitant]
  13. VOLMAX [Concomitant]

REACTIONS (8)
  - ARTHRALGIA [None]
  - DIFFICULTY IN WALKING [None]
  - DYSPNOEA [None]
  - HYPOTENSION [None]
  - NAUSEA [None]
  - RASH GENERALISED [None]
  - URTICARIA [None]
  - VOMITING [None]
